FAERS Safety Report 4911823-4 (Version None)
Quarter: 2006Q1

REPORT INFORMATION
  Report Type: 
  Country: None (occurrence: None)
  Receive Date: 20060213
  Receipt Date: 20060213
  Transmission Date: 20060701
  Serious: Yes (Life-Threatening, Hospitalization)
  Sender: FDA-Public Use
  Company Number: None

PATIENT
  Age: 17 Year
  Sex: Female
  Weight: 39.9165 kg

DRUGS (2)
  1. LAMICTAL [Suspect]
     Indication: CONVULSION
     Dosage: 1 PER DAY FOR FIRST WEEK  PO;  2 PER DAY SECOND WEEK  4 PER DAY THIRD WE   PO
     Route: 048
     Dates: start: 20040403, end: 20040410
  2. LAMICTAL [Suspect]
     Indication: CONVULSION
     Dosage: 1 PER DAY FOR FIRST WEEK  PO;  2 PER DAY SECOND WEEK  4 PER DAY THIRD WE   PO
     Route: 048
     Dates: start: 20040411, end: 20040425

REACTIONS (7)
  - DRY EYE [None]
  - HAIR GROWTH ABNORMAL [None]
  - NAIL DISORDER [None]
  - RASH MACULAR [None]
  - SENSORY DISTURBANCE [None]
  - STEVENS-JOHNSON SYNDROME [None]
  - TENSION [None]
